FAERS Safety Report 7163526-6 (Version None)
Quarter: 2010Q4

REPORT INFORMATION
  Report Type: 
  Country: None (occurrence: None)
  Receive Date: 20101215
  Receipt Date: 20100506
  Transmission Date: 20110411
  Serious: Yes (Other)
  Sender: FDA-Public Use
  Company Number: FR-PFIZER INC-2009280816

PATIENT
  Age: 71 Year
  Sex: Female
  Weight: 52 kg

DRUGS (4)
  1. LYRICA [Suspect]
     Indication: NEURALGIA
     Dosage: 100 MG, 1X/DAY
     Dates: start: 20090613, end: 20090619
  2. INNOHEP [Suspect]
     Dosage: UNK
     Dates: end: 20090613
  3. PAROXETINE [Suspect]
     Indication: NEURALGIA
     Dosage: UNK
     Dates: start: 20090613, end: 20090619
  4. PREVISCAN [Concomitant]
     Dosage: UNK
     Dates: start: 20090601

REACTIONS (1)
  - STEVENS-JOHNSON SYNDROME [None]
